FAERS Safety Report 19646229 (Version 1)
Quarter: 2021Q3

REPORT INFORMATION
  Report Type: Spontaneous
  Country: US (occurrence: US)
  Receive Date: 20210802
  Receipt Date: 20210802
  Transmission Date: 20211014
  Serious: Yes (Life-Threatening)
  Sender: FDA-Public Use
  Company Number: US-ACCORD-234153

PATIENT

DRUGS (2)
  1. MITOMYCIN. [Concomitant]
     Active Substance: MITOMYCIN
     Indication: ANAL CANCER
     Dosage: IV BOLUS DAYS?1 AND 29
     Route: 040
  2. FLUOROURACIL. [Suspect]
     Active Substance: FLUOROURACIL
     Indication: ANAL CANCER
     Dosage: CONTINUOUS INTRAVENOUS (IV) INFUSION
     Route: 042

REACTIONS (2)
  - Off label use [Unknown]
  - Toxicity to various agents [Unknown]
